FAERS Safety Report 19211634 (Version 1)
Quarter: 2021Q2

REPORT INFORMATION
  Report Type: Report from Study
  Country: US (occurrence: US)
  Receive Date: 20210504
  Receipt Date: 20210504
  Transmission Date: 20210717
  Serious: No
  Sender: FDA-Public Use
  Company Number: US-BIOVITRUM-2021US4182

PATIENT
  Sex: Male

DRUGS (1)
  1. KINERET [Suspect]
     Active Substance: ANAKINRA
     Indication: RHEUMATOID ARTHRITIS
     Route: 058
     Dates: start: 20210415

REACTIONS (5)
  - Injection site pain [Unknown]
  - Wound haemorrhage [Unknown]
  - Drug ineffective [Unknown]
  - Product dose omission issue [Unknown]
  - Wound [Unknown]
